FAERS Safety Report 23388890 (Version 1)
Quarter: 2024Q1

REPORT INFORMATION
  Report Type: Spontaneous
  Country: FR (occurrence: FR)
  Receive Date: 20240110
  Receipt Date: 20240110
  Transmission Date: 20240410
  Serious: Yes (Other)
  Sender: FDA-Public Use
  Company Number: None

PATIENT
  Age: 41 Year
  Sex: Female

DRUGS (2)
  1. KETOCONAZOLE [Suspect]
     Active Substance: KETOCONAZOLE
     Indication: Skin plaque
     Dosage: UNK
     Route: 003
     Dates: start: 20230909, end: 20230910
  2. DESONIDE [Concomitant]
     Active Substance: DESONIDE
     Indication: Skin plaque
     Dosage: UNK
     Route: 003
     Dates: start: 20230909, end: 20230910

REACTIONS (2)
  - Face oedema [Recovered/Resolved]
  - Erythema [Recovered/Resolved]

NARRATIVE: CASE EVENT DATE: 20230910
